FAERS Safety Report 5213876-5 (Version None)
Quarter: 2007Q1

REPORT INFORMATION
  Report Type: 
  Country: None (occurrence: None)
  Receive Date: 20070117
  Receipt Date: 20070111
  Transmission Date: 20070707
  Serious: Yes (Other)
  Sender: FDA-Public Use
  Company Number: 238291K06USA

PATIENT
  Age: 44 Year
  Sex: Female

DRUGS (3)
  1. REBIF [Suspect]
     Indication: MULTIPLE SCLEROSIS
     Dosage: 44 MCG, 3 IN 1  WEEKS, SUBCUTANEOUS
     Route: 058
     Dates: start: 20060608
  2. OXYCODONE HCL [Concomitant]
  3. KEPPRA [Concomitant]

REACTIONS (2)
  - AMNESIA [None]
  - CONVULSION [None]
